FAERS Safety Report 18535119 (Version 1)
Quarter: 2020Q4

REPORT INFORMATION
  Report Type: Spontaneous
  Country: US (occurrence: US)
  Receive Date: 20201123
  Receipt Date: 20201123
  Transmission Date: 20210114
  Serious: Yes (Other)
  Sender: FDA-Public Use
  Company Number: US-PURDUE PHARMA-USA-2020-0177351

PATIENT
  Age: 76 Year
  Sex: Female
  Weight: 81.65 kg

DRUGS (5)
  1. OXYCODONE HYDROCHLORIDE (SIMILAR TO NDA 22-272) [Suspect]
     Active Substance: OXYCODONE HYDROCHLORIDE
     Indication: ARTHRALGIA
  2. LIPITOR [Concomitant]
     Active Substance: ATORVASTATIN CALCIUM
     Indication: BLOOD CHOLESTEROL INCREASED
     Dosage: 10 MG, DAILY
     Route: 048
  3. GABAPENTIN. [Concomitant]
     Active Substance: GABAPENTIN
     Indication: SCIATICA
     Dosage: 3X100MG, TID
     Route: 048
     Dates: start: 202005
  4. OXYCODONE HYDROCHLORIDE (SIMILAR TO NDA 22-272) [Suspect]
     Active Substance: OXYCODONE HYDROCHLORIDE
     Indication: SCIATICA
     Dosage: 0.5 TABLET, UNK
     Route: 048
  5. LEVOTHYROXIN [Concomitant]
     Active Substance: LEVOTHYROXINE
     Indication: HYPOTHYROIDISM
     Dosage: 100 MCG, DAILY
     Route: 048

REACTIONS (10)
  - Body height decreased [Unknown]
  - Fatigue [Unknown]
  - Fall [Unknown]
  - Surgery [Unknown]
  - Dysphonia [Unknown]
  - Asthenia [Unknown]
  - Drug abuse [Unknown]
  - Hand fracture [Unknown]
  - Inadequate analgesia [Unknown]
  - Diplopia [Unknown]

NARRATIVE: CASE EVENT DATE: 202001
